FAERS Safety Report 4541531-3 (Version None)
Quarter: 2004Q4

REPORT INFORMATION
  Report Type: 
  Country: None (occurrence: None)
  Receive Date: 20041227
  Receipt Date: 20041216
  Transmission Date: 20050328
  Serious: No
  Sender: FDA-Public Use
  Company Number: 2004CG02374

PATIENT
  Age: 36 Year
  Sex: Male
  Weight: 100 kg

DRUGS (1)
  1. HYTACAND [Suspect]
     Indication: HYPERTENSION
     Dosage: 8 MG + 12.5 MG QD
     Dates: start: 20041115, end: 20041118

REACTIONS (2)
  - DRUG INEFFECTIVE [None]
  - HYPERTENSION [None]
